FAERS Safety Report 14552988 (Version 1)
Quarter: 2018Q1

REPORT INFORMATION
  Report Type: Report from Study
  Country: GB (occurrence: GB)
  Receive Date: 20180220
  Receipt Date: 20180220
  Transmission Date: 20180509
  Serious: Yes (Death, Hospitalization)
  Sender: FDA-Public Use
  Company Number: GB-CELLTRION INC.-2018GB017937

PATIENT

DRUGS (3)
  1. REMSIMA [Suspect]
     Active Substance: INFLIXIMAB
     Dosage: UNK
     Route: 042
     Dates: start: 20161214, end: 20161214
  2. REMSIMA [Suspect]
     Active Substance: INFLIXIMAB
     Dosage: UNK
     Route: 042
     Dates: start: 20170403, end: 20170403
  3. METHOTREXATE. [Concomitant]
     Active Substance: METHOTREXATE
     Indication: RHEUMATOID ARTHRITIS

REACTIONS (6)
  - Central nervous system lesion [Fatal]
  - Neutropenic sepsis [Fatal]
  - Histiocytosis haematophagic [Fatal]
  - Neutropenia [Fatal]
  - Lung disorder [Fatal]
  - Eye infection fungal [Fatal]

NARRATIVE: CASE EVENT DATE: 20170610
